FAERS Safety Report 26057686 (Version 1)
Quarter: 2025Q4

REPORT INFORMATION
  Report Type: Spontaneous
  Country: US (occurrence: US)
  Receive Date: 20251118
  Receipt Date: 20251118
  Transmission Date: 20260118
  Serious: Yes (Other)
  Sender: BRISTOL-MYERS SQUIBB COMPANY
  Company Number: US-BRISTOL-MYERS SQUIBB COMPANY-2025-155287

PATIENT
  Age: 85 Year
  Sex: Female
  Weight: 85.28 kg

DRUGS (1)
  1. POMALYST [Suspect]
     Active Substance: POMALIDOMIDE
     Indication: Plasma cell myeloma
     Dosage: 2MG (1 CAPSULE) ORALLY DAILY FOR 21 DAYS ON, THEN 7 DAYS OFF
     Route: 048
     Dates: end: 20251010

REACTIONS (1)
  - Plasma cell myeloma [Unknown]
